FAERS Safety Report 4815711-3 (Version None)
Quarter: 2005Q4

REPORT INFORMATION
  Report Type: 
  Country: None (occurrence: None)
  Receive Date: 20051027
  Receipt Date: 20051013
  Transmission Date: 20060501
  Serious: Yes (Death, Life-Threatening)
  Sender: FDA-Public Use
  Company Number: 218625

PATIENT
  Age: 63 Year
  Sex: Male

DRUGS (6)
  1. RITUXAN (RITUXIMAB) CONC FOR SOLUTION FOR INFUSION [Suspect]
     Indication: NON-HODGKIN'S LYMPHOMA
     Dosage: 500 MG, QD, INTRAVENOUS
     Route: 042
     Dates: start: 20010914, end: 20010914
  2. RITUXAN (RITUXIMAB) CONC FOR SOLUTION FOR INFUSION [Suspect]
     Indication: NON-HODGKIN'S LYMPHOMA
     Dosage: 500 MG, QD, INTRAVENOUS
     Route: 042
     Dates: start: 20010921, end: 20010921
  3. RITUXAN (RITUXIMAB) CONC FOR SOLUTION FOR INFUSION [Suspect]
     Indication: NON-HODGKIN'S LYMPHOMA
     Dosage: 500 MG, QD, INTRAVENOUS
     Route: 042
     Dates: start: 20011109, end: 20020703
  4. CISPLATIN [Suspect]
     Indication: NON-HODGKIN'S LYMPHOMA
     Dosage: 150 MG
     Dates: start: 20010701
  5. CYTARABINE [Suspect]
     Indication: NON-HODGKIN'S LYMPHOMA
     Dosage: 6 G
     Dates: start: 20020702
  6. DEXAMETHASONE [Suspect]
     Indication: NON-HODGKIN'S LYMPHOMA
     Dosage: 40 MG
     Dates: start: 20020701, end: 20020704

REACTIONS (6)
  - ASTHENIA [None]
  - BLOOD PHOSPHORUS INCREASED [None]
  - LEUKOPENIA [None]
  - NEUTROPENIA [None]
  - RENAL FAILURE ACUTE [None]
  - SOMNOLENCE [None]
